FAERS Safety Report 4690753-X (Version None)
Quarter: 2005Q2

REPORT INFORMATION
  Report Type: 
  Country: None (occurrence: None)
  Receive Date: 20050615
  Receipt Date: 20050303
  Transmission Date: 20051028
  Serious: Yes (Hospitalization)
  Sender: FDA-Public Use
  Company Number: US-MERCK-0503USA00850

PATIENT
  Age: 73 Year
  Sex: Male
  Weight: 100 kg

DRUGS (8)
  1. VIOXX [Suspect]
     Indication: NECK PAIN
     Route: 048
     Dates: start: 20000313, end: 20040930
  2. VIOXX [Suspect]
     Route: 048
     Dates: start: 20000313, end: 20040930
  3. VIOXX [Suspect]
     Route: 048
     Dates: start: 20000313, end: 20040930
  4. CARDURA [Concomitant]
     Route: 065
     Dates: start: 20000522, end: 20001023
  5. ZOLOFT [Concomitant]
     Indication: DEPRESSION
     Route: 065
     Dates: start: 19991124, end: 20040609
  6. LORAZEPAM [Concomitant]
     Indication: ANXIETY
     Route: 065
     Dates: start: 20000416
  7. CLARITIN [Concomitant]
     Indication: SEASONAL ALLERGY
     Route: 065
  8. HYDROCODONE BITARTRATE [Concomitant]
     Route: 065
     Dates: start: 20021001, end: 20021222

REACTIONS (13)
  - ACUTE MYOCARDIAL INFARCTION [None]
  - ATRIOVENTRICULAR BLOCK FIRST DEGREE [None]
  - CARDIOMYOPATHY [None]
  - CHEST DISCOMFORT [None]
  - CORONARY ARTERY DISEASE [None]
  - EMOTIONAL DISTRESS [None]
  - GASTROENTERITIS [None]
  - HYPERLIPIDAEMIA [None]
  - MYOCARDIAL ISCHAEMIA [None]
  - PAIN [None]
  - PERICARDIAL EFFUSION [None]
  - SYNCOPE [None]
  - VENTRICULAR TACHYCARDIA [None]
